FAERS Safety Report 23170838 (Version 1)
Quarter: 2023Q4

REPORT INFORMATION
  Report Type: Spontaneous
  Country: US (occurrence: None)
  Receive Date: 20231109
  Receipt Date: 20231109
  Transmission Date: 20240110
  Serious: Yes (Other)
  Sender: FDA-Public Use
  Company Number: None

PATIENT
  Age: 43 Year
  Sex: Male

DRUGS (8)
  1. MAVYRET [Suspect]
     Active Substance: GLECAPREVIR\PIBRENTASVIR
     Indication: Chronic hepatitis C
     Dosage: 100-40 MG  3 TS QD PO?
     Route: 048
     Dates: start: 20231002
  2. IBUPROFEN [Concomitant]
     Active Substance: IBUPROFEN
  3. PRAZOSIN [Concomitant]
     Active Substance: PRAZOSIN
  4. STRATTERA [Concomitant]
  5. SUBLOCADE [Concomitant]
  6. SUBOXONE [Concomitant]
  7. VISTARIL [Concomitant]
     Active Substance: HYDROXYZINE PAMOATE
  8. CENTRUM ULTRA MEN TABLETS [Concomitant]

REACTIONS (2)
  - Abnormal dreams [None]
  - Insomnia [None]

NARRATIVE: CASE EVENT DATE: 20231009
